FAERS Safety Report 5740251-7 (Version None)
Quarter: 2008Q2

REPORT INFORMATION
  Report Type: 
  Country: None (occurrence: None)
  Receive Date: 20080516
  Receipt Date: 20080506
  Transmission Date: 20081010
  Serious: Yes (Other)
  Sender: FDA-Public Use
  Company Number: US-JNJFOC-20080501468

PATIENT
  Sex: Female

DRUGS (17)
  1. DURAGESIC-100 [Suspect]
     Indication: DRUG USE FOR UNKNOWN INDICATION
     Route: 062
  2. ACTIQ [Suspect]
     Dosage: AS NEEDED
     Route: 002
  3. ACTIQ [Suspect]
     Route: 002
  4. ACTIQ [Suspect]
     Route: 002
  5. ACTIQ [Suspect]
     Indication: PAIN IN EXTREMITY
     Dosage: AS NEEDED
     Route: 002
  6. PERCOCET [Suspect]
     Indication: DRUG USE FOR UNKNOWN INDICATION
     Dosage: 10/500 MG DOSE
     Route: 065
  7. DILAUDID [Suspect]
     Indication: DRUG USE FOR UNKNOWN INDICATION
     Dosage: INTERMITTENTLY USED OVER 4 YEARS
     Route: 048
  8. KADIAN [Suspect]
     Indication: DRUG USE FOR UNKNOWN INDICATION
     Route: 065
  9. LORTAB [Suspect]
     Indication: DRUG USE FOR UNKNOWN INDICATION
     Route: 048
  10. OXYCODONE HCL [Suspect]
     Indication: DRUG USE FOR UNKNOWN INDICATION
     Route: 048
  11. OXYCONTIN [Suspect]
     Indication: DRUG USE FOR UNKNOWN INDICATION
     Route: 048
  12. XANAX [Concomitant]
  13. EFFEXOR [Concomitant]
  14. GABITRIL [Concomitant]
  15. LYRICA [Concomitant]
  16. TRAZODONE HCL [Concomitant]
  17. ZONEGRAN [Concomitant]

REACTIONS (6)
  - DENTAL CARIES [None]
  - DRUG DEPENDENCE [None]
  - DRUG TOLERANCE [None]
  - ORAL INFECTION [None]
  - PERSONALITY CHANGE [None]
  - TOOTH LOSS [None]
